FAERS Safety Report 23352546 (Version 1)
Quarter: 2023Q4

REPORT INFORMATION
  Report Type: Report from Study
  Country: US (occurrence: US)
  Receive Date: 20231230
  Receipt Date: 20231230
  Transmission Date: 20240109
  Serious: Yes (Other)
  Sender: FDA-Public Use
  Company Number: US-ABBVIE-5560955

PATIENT
  Sex: Male

DRUGS (3)
  1. SKYRIZI [Suspect]
     Active Substance: RISANKIZUMAB-RZAA
     Indication: Psoriasis
     Dosage: WEEK 0?FORM STRENGTH: 150  MILLIGRAM
     Route: 058
     Dates: start: 20230728, end: 20230728
  2. SKYRIZI [Suspect]
     Active Substance: RISANKIZUMAB-RZAA
     Dosage: WEEK 12?FORM STRENGTH: 150 MILLIGRAM
     Route: 058
     Dates: start: 20231125
  3. SKYRIZI [Suspect]
     Active Substance: RISANKIZUMAB-RZAA
     Dosage: FORM STRENGTH: 150 MILLIGRAM ?WEEK 4
     Route: 058
     Dates: start: 20230825, end: 20230825

REACTIONS (5)
  - Chest discomfort [Unknown]
  - Nasopharyngitis [Unknown]
  - Cough [Unknown]
  - Upper respiratory tract congestion [Unknown]
  - Increased bronchial secretion [Unknown]

NARRATIVE: CASE EVENT DATE: 20230101
